FAERS Safety Report 14147277 (Version 1)
Quarter: 2017Q4

REPORT INFORMATION
  Report Type: Not Available
  Country: US (occurrence: US)
  Receive Date: 20171101
  Receipt Date: 20171101
  Transmission Date: 20180321
  Serious: No
  Sender: FDA-Public Use
  Company Number: US-NEUROCRINE BIOSCIENCES INC.-2017NBI00772

PATIENT
  Age: 61 Year
  Sex: Male

DRUGS (19)
  1. FLOMAX [Concomitant]
     Active Substance: TAMSULOSIN HYDROCHLORIDE
  2. MUPIROCIN. [Concomitant]
     Active Substance: MUPIROCIN
  3. HYDROXYZINE [Concomitant]
     Active Substance: HYDROXYZINE HYDROCHLORIDE
  4. BISACODYL. [Concomitant]
     Active Substance: BISACODYL
  5. VITAMIN D [Concomitant]
     Active Substance: CHOLECALCIFEROL
  6. ASPIRIN. [Concomitant]
     Active Substance: ASPIRIN
  7. SYMBICORT [Concomitant]
     Active Substance: BUDESONIDE\FORMOTEROL FUMARATE DIHYDRATE
  8. CLONAZEPAM. [Concomitant]
     Active Substance: CLONAZEPAM
  9. PROSCAR [Concomitant]
     Active Substance: FINASTERIDE
  10. PROTONIX [Concomitant]
     Active Substance: PANTOPRAZOLE SODIUM
  11. MILK OF MAGNESIA [Concomitant]
     Active Substance: MAGNESIUM HYDROXIDE
  12. COGENTIN [Concomitant]
     Active Substance: BENZTROPINE MESYLATE
  13. INGREZZA [Suspect]
     Active Substance: VALBENAZINE
     Indication: TARDIVE DYSKINESIA
     Route: 048
     Dates: start: 20170727
  14. TYLENOL [Concomitant]
     Active Substance: ACETAMINOPHEN
  15. ATORVASTATIN [Concomitant]
     Active Substance: ATORVASTATIN
  16. SPIRIVA [Concomitant]
     Active Substance: TIOTROPIUM BROMIDE MONOHYDRATE
  17. DOCUSATE [Concomitant]
     Active Substance: DOCUSATE
  18. LORAZEPAM. [Concomitant]
     Active Substance: LORAZEPAM
  19. HALDOL [Concomitant]
     Active Substance: HALOPERIDOL

REACTIONS (1)
  - Aggression [Not Recovered/Not Resolved]

NARRATIVE: CASE EVENT DATE: 20170801
